FAERS Safety Report 21755976 (Version 2)
Quarter: 2022Q4

REPORT INFORMATION
  Report Type: Spontaneous
  Country: FR (occurrence: FR)
  Receive Date: 20221220
  Receipt Date: 20221227
  Transmission Date: 20230112
  Serious: Yes (Hospitalization, Other)
  Sender: FDA-Public Use
  Company Number: FR-009507513-2212FRA005950

PATIENT
  Age: 86 Year
  Sex: Female

DRUGS (2)
  1. JANUMET [Suspect]
     Active Substance: METFORMIN HYDROCHLORIDE\SITAGLIPTIN PHOSPHATE
     Dosage: 50MG IN THE MORNING AND 50 MG IN THE EVENING
     Route: 048
     Dates: start: 2012, end: 20221115
  2. DAPAGLIFLOZIN [Suspect]
     Active Substance: DAPAGLIFLOZIN
     Dosage: UNK
     Dates: start: 202211

REACTIONS (5)
  - Pancreatitis necrotising [Unknown]
  - Diabetic ketoacidosis [Unknown]
  - Gastrointestinal obstruction [Unknown]
  - Renal failure [Unknown]
  - Polyuria [Unknown]

NARRATIVE: CASE EVENT DATE: 20220101
